FAERS Safety Report 18607005 (Version 5)
Quarter: 2021Q2

REPORT INFORMATION
  Report Type: Report from Study
  Country: JP (occurrence: JP)
  Receive Date: 20201211
  Receipt Date: 20210408
  Transmission Date: 20210717
  Serious: Yes (Death)
  Sender: FDA-Public Use
  Company Number: JP-PFIZER INC-2020488678

PATIENT
  Age: 42 Year
  Sex: Female

DRUGS (8)
  1. BRAFTOVI [Suspect]
     Active Substance: ENCORAFENIB
     Dosage: 300 MG, EVERYDAY
     Route: 048
     Dates: start: 20201201, end: 20201204
  2. MEKTOVI [Suspect]
     Active Substance: BINIMETINIB
     Indication: COLON CANCER
     Dosage: 30 MG, Q12H
     Route: 048
     Dates: start: 20201026, end: 20201106
  3. BESOFTEN [Concomitant]
     Active Substance: PENTOSAN POLYSULFATE SODIUM
     Indication: SKIN DISORDER PROPHYLAXIS
     Dosage: UNK UNK, PRN (LOTION (EXCEPT LOTION FOR EYE))
     Route: 061
     Dates: start: 20201026
  4. CETUXIMAB. [Suspect]
     Active Substance: CETUXIMAB
     Indication: COLON CANCER
     Dosage: 370 MG
     Route: 065
     Dates: start: 20201026
  5. BRAFTOVI [Suspect]
     Active Substance: ENCORAFENIB
     Indication: COLON CANCER
     Dosage: 300 MG, EVERYDAY
     Route: 048
     Dates: start: 20201026, end: 20201106
  6. HEPARINOID [Concomitant]
     Active Substance: CHONDROITIN SULFATE (BOVINE)
     Indication: SKIN DISORDER PROPHYLAXIS
     Dosage: UNK UNK, PRN
     Route: 061
     Dates: start: 20201130
  7. MEKTOVI [Suspect]
     Active Substance: BINIMETINIB
     Dosage: UNK
     Route: 048
     Dates: start: 20201201, end: 20201204
  8. CETUXIMAB. [Suspect]
     Active Substance: CETUXIMAB
     Dosage: 370 MG
     Route: 065
     Dates: start: 20201201

REACTIONS (1)
  - Neoplasm progression [Fatal]

NARRATIVE: CASE EVENT DATE: 20201206
